FAERS Safety Report 22005806 (Version 2)
Quarter: 2023Q1

REPORT INFORMATION
  Report Type: Report from Study
  Country: US (occurrence: US)
  Receive Date: 20230217
  Receipt Date: 20230222
  Transmission Date: 20230417
  Serious: Yes (Disabling, Other)
  Sender: FDA-Public Use
  Company Number: US-ABBVIE-4308931

PATIENT
  Age: 64 Year
  Sex: Female
  Weight: 36.287 kg

DRUGS (5)
  1. CREON [Suspect]
     Active Substance: PANCRELIPASE AMYLASE\PANCRELIPASE LIPASE\PANCRELIPASE PROTEASE
     Indication: Pancreaticoduodenectomy
     Dosage: 24000 UNIT
     Route: 048
     Dates: start: 2009, end: 202212
  2. OXYCODONE [Concomitant]
     Active Substance: OXYCODONE
     Indication: Weight bearing difficulty
     Dosage: TIME INTERVAL: 0.33333333 DAYS: 325 MILLIGRAM
  3. AMOXAPINE [Concomitant]
     Active Substance: AMOXAPINE
     Indication: Sleep disorder therapy
     Dosage: 1/2 TAB AT BEDTIME
  4. METOPROLOL TARTRATE [Concomitant]
     Active Substance: METOPROLOL TARTRATE
     Indication: Arrhythmia
     Dosage: 25 MILLIGRAM
  5. LORAZEPAM [Concomitant]
     Active Substance: LORAZEPAM
     Indication: Sleep disorder therapy
     Dosage: 1 MILLIGRAM

REACTIONS (15)
  - Hip surgery [Recovering/Resolving]
  - Faeces discoloured [Unknown]
  - Oedema [Not Recovered/Not Resolved]
  - Fatigue [Not Recovered/Not Resolved]
  - Pain [Not Recovered/Not Resolved]
  - Feeling abnormal [Not Recovered/Not Resolved]
  - Protein total decreased [Not Recovered/Not Resolved]
  - Skin disorder [Not Recovered/Not Resolved]
  - Swelling [Not Recovered/Not Resolved]
  - Wound [Not Recovered/Not Resolved]
  - Poor peripheral circulation [Recovering/Resolving]
  - Diarrhoea [Not Recovered/Not Resolved]
  - Alopecia [Not Recovered/Not Resolved]
  - Wheelchair user [Not Recovered/Not Resolved]
  - Starvation [Not Recovered/Not Resolved]

NARRATIVE: CASE EVENT DATE: 20211101
